FAERS Safety Report 9893443 (Version 1)
Quarter: 2014Q1

REPORT INFORMATION
  Report Type: Report from Study
  Country: US (occurrence: US)
  Receive Date: 20140213
  Receipt Date: 20140213
  Transmission Date: 20141002
  Serious: Yes (Death)
  Sender: FDA-Public Use
  Company Number: US-ROCHE-1324724

PATIENT
  Sex: Female

DRUGS (6)
  1. AVASTIN [Suspect]
     Indication: COLON CANCER
     Route: 042
  2. ALOXI [Concomitant]
     Route: 042
  3. DECADRON [Concomitant]
     Route: 042
  4. LEUCOVORIN [Concomitant]
     Route: 042
  5. 5-FU [Concomitant]
     Dosage: OVER 46 HOURS
     Route: 041
  6. PROCRIT [Concomitant]
     Route: 058
     Dates: start: 20110309

REACTIONS (5)
  - Death [Fatal]
  - Fatigue [Unknown]
  - Nausea [Unknown]
  - Blood calcium decreased [Unknown]
  - Pain [Unknown]
